FAERS Safety Report 8521085 (Version 2)
Quarter: 2012Q4

REPORT INFORMATION
  Report Type: Spontaneous
  Country: US (occurrence: None)
  Receive Date: 20120309
  Receipt Date: 20120608
  Transmission Date: 20130627
  Serious: No
  Sender: FDA-Public Use
  Company Number: TH-2012-00095

PATIENT
  Sex: Male

DRUGS (4)
  1. EGRIFTA [Suspect]
     Indication: LIPODYSTROPHY ACQUIRED
     Dosage: 1 IN 1 D, SUBCUTANEOUS
     Route: 058
     Dates: start: 201111
  2. EGRIFTA [Suspect]
     Indication: LIPODYSTROPHY ACQUIRED
     Dates: start: 201110
  3. METFORMIN (METFORMIN) [Concomitant]
  4. BYETTA (EXENATIDE) [Concomitant]

REACTIONS (3)
  - Blood cholesterol increased [None]
  - Blood glucose increased [None]
  - Glycosylated haemoglobin increased [None]
